FAERS Safety Report 18616055 (Version 1)
Quarter: 2020Q4

REPORT INFORMATION
  Report Type: Report from Study
  Country: CO (occurrence: CO)
  Receive Date: 20201214
  Receipt Date: 20201214
  Transmission Date: 20210114
  Serious: Yes (Other)
  Sender: FDA-Public Use
  Company Number: NVSC2020CO330032

PATIENT
  Age: 78 Year
  Sex: Female
  Weight: 64 kg

DRUGS (4)
  1. KRYTANTEK [Suspect]
     Active Substance: BRIMONIDINE TARTRATE\DORZOLAMIDE HYDROCHLORIDE\TIMOLOL MALEATE
     Indication: MACULAR OEDEMA
     Dosage: 1 DROP  EVERY 8 HOUR
     Route: 065
     Dates: start: 202010
  2. LOSARTAN. [Suspect]
     Active Substance: LOSARTAN
     Indication: HYPERTENSION
     Dosage: 100 MG, QD, 2 YEARS AGO
     Route: 048
  3. KOMBIGLYZE XR [Concomitant]
     Active Substance: METFORMIN HYDROCHLORIDE\SAXAGLIPTIN HYDROCHLORIDE
     Indication: DIABETES MELLITUS
     Dosage: UNK, QD 2 YEARS AGO
     Route: 048
  4. ASAPRIN [Concomitant]
     Active Substance: ASPIRIN
     Dosage: UNK, QD, 5 YEARS AGO
     Route: 048

REACTIONS (5)
  - Macular oedema [Unknown]
  - Intraocular pressure decreased [Unknown]
  - Eye pain [Recovered/Resolved]
  - Vision blurred [Not Recovered/Not Resolved]
  - Papilloedema [Recovered/Resolved]

NARRATIVE: CASE EVENT DATE: 202010
